FAERS Safety Report 4685227-6 (Version None)
Quarter: 2005Q2

REPORT INFORMATION
  Report Type: 
  Country: None (occurrence: None)
  Receive Date: 20050607
  Receipt Date: 20050603
  Transmission Date: 20051028
  Serious: Yes (Other)
  Sender: FDA-Public Use
  Company Number: 05-06-0968

PATIENT
  Sex: Male

DRUGS (1)
  1. BACLOFEN [Suspect]
     Dosage: 10 MG TDS

REACTIONS (3)
  - CONFUSIONAL STATE [None]
  - RENAL IMPAIRMENT [None]
  - SEDATION [None]
